FAERS Safety Report 13090226 (Version 2)
Quarter: 2017Q1

REPORT INFORMATION
  Report Type: Spontaneous
  Country: JP (occurrence: JP)
  Receive Date: 20170105
  Receipt Date: 20170116
  Transmission Date: 20170428
  Serious: Yes (Death, Hospitalization, Other)
  Sender: FDA-Public Use
  Company Number: JP-BAYER-2016-229950

PATIENT
  Age: 48 Year
  Sex: Female
  Weight: 53 kg

DRUGS (4)
  1. HEPARIN [Suspect]
     Active Substance: HEPARIN SODIUM
     Indication: PULMONARY EMBOLISM
     Dosage: DAILY DOSE 5000 U
     Dates: start: 20161125
  2. CILNIDIPINE [Concomitant]
     Active Substance: CILNIDIPINE
     Indication: HYPERTENSION
     Dosage: DAILY DOSE 5 MG
     Route: 048
  3. YAZ [Suspect]
     Active Substance: DROSPIRENONE\ETHINYL ESTRADIOL
     Indication: DYSMENORRHOEA
     Dosage: UNK
     Route: 048
     Dates: start: 20151123, end: 20161124
  4. CLEACTOR [Suspect]
     Active Substance: MONTEPLASE
     Indication: PULMONARY EMBOLISM
     Dosage: DAILY DOSE 800000 U
     Route: 042
     Dates: start: 20161125

REACTIONS (12)
  - Palpitations [None]
  - Cardiac failure [None]
  - Anaemia [None]
  - Dyspnoea exertional [None]
  - Fibrin D dimer increased [None]
  - Cardio-respiratory arrest [Recovered/Resolved]
  - Hypotension [None]
  - Dyspnoea [Fatal]
  - Cerebral haemorrhage [Fatal]
  - Venous thrombosis limb [None]
  - Depressed level of consciousness [Fatal]
  - Pulmonary embolism [Fatal]

NARRATIVE: CASE EVENT DATE: 20161124
